FAERS Safety Report 24726595 (Version 1)
Quarter: 2024Q4

REPORT INFORMATION
  Report Type: Report from Study
  Country: US (occurrence: US)
  Receive Date: 20241212
  Receipt Date: 20241212
  Transmission Date: 20250115
  Serious: Yes (Other)
  Sender: NOVARTIS
  Company Number: US-002147023-NVSC2024US235309

PATIENT
  Age: 72 Year
  Sex: Female
  Weight: 65.306 kg

DRUGS (1)
  1. LEQVIO [Suspect]
     Active Substance: INCLISIRAN SODIUM
     Indication: Blood cholesterol abnormal
     Dosage: 284 MG, OTHER (INITIAL INJECTION IN JULY, THEN THREE MONTH INJECTION TAKEN IN OCTOBER)
     Route: 058
     Dates: start: 20240710, end: 20241030

REACTIONS (1)
  - Muscular weakness [Not Recovered/Not Resolved]

NARRATIVE: CASE EVENT DATE: 20241115
